FAERS Safety Report 18922709 (Version 1)
Quarter: 2021Q1

REPORT INFORMATION
  Report Type: Report from Study
  Country: IN (occurrence: IN)
  Receive Date: 20210222
  Receipt Date: 20210222
  Transmission Date: 20210420
  Serious: Yes (Other)
  Sender: FDA-Public Use
  Company Number: IN-MYLANLABS-2021M1010708

PATIENT
  Sex: Female

DRUGS (1)
  1. CARBOPLATIN. [Suspect]
     Active Substance: CARBOPLATIN
     Indication: CERVIX CARCINOMA RECURRENT
     Dosage: Q3W DOSE: AREA UNDER...
     Route: 065

REACTIONS (1)
  - Thrombosis [Unknown]
